FAERS Safety Report 9003917 (Version 1)
Quarter: 2013Q1

REPORT INFORMATION
  Report Type: Spontaneous
  Country: CN (occurrence: CN)
  Receive Date: 20130108
  Receipt Date: 20130108
  Transmission Date: 20140127
  Serious: Yes (Hospitalization, Other)
  Sender: FDA-Public Use
  Company Number: CN-BAYER-2013-001811

PATIENT
  Age: 56 Year
  Sex: Male
  Weight: 88 kg

DRUGS (1)
  1. AVELOX [Suspect]
     Indication: ANTI-INFECTIVE THERAPY
     Dosage: 0.48 G, QD
     Route: 041
     Dates: start: 20100804, end: 20100805

REACTIONS (1)
  - Rash pruritic [Recovering/Resolving]
